FAERS Safety Report 15847131 (Version 3)
Quarter: 2025Q1

REPORT INFORMATION
  Report Type: Report from Study
  Country: RS (occurrence: RS)
  Receive Date: 20190121
  Receipt Date: 20250207
  Transmission Date: 20250408
  Serious: Yes (Congenital Anomaly, Other)
  Sender: UCB
  Company Number: CX-UCBSA-2019001742

PATIENT

DRUGS (3)
  1. LEVETIRACETAM [Suspect]
     Active Substance: LEVETIRACETAM
     Indication: Epilepsy
     Route: 064
  2. LAMOTRIGINE [Concomitant]
     Active Substance: LAMOTRIGINE
     Indication: Epilepsy
     Route: 064
  3. PREGABALIN [Concomitant]
     Active Substance: PREGABALIN
     Indication: Epilepsy
     Route: 064

REACTIONS (2)
  - Microcephaly [Unknown]
  - Maternal exposure during pregnancy [Unknown]
